FAERS Safety Report 17839352 (Version 2)
Quarter: 2020Q2

REPORT INFORMATION
  Report Type: Spontaneous
  Country: US (occurrence: US)
  Receive Date: 20200529
  Receipt Date: 20200627
  Transmission Date: 20200714
  Serious: Yes (Other)
  Sender: FDA-Public Use
  Company Number: NVSC2020US142566

PATIENT
  Age: 56 Year
  Sex: Male

DRUGS (9)
  1. METHYLPREDNISOLONE. [Suspect]
     Active Substance: METHYLPREDNISOLONE
     Indication: MENINGITIS
  2. PREDNISONE. [Suspect]
     Active Substance: PREDNISONE
     Indication: MENINGITIS
  3. METHYLPREDNISOLONE. [Suspect]
     Active Substance: METHYLPREDNISOLONE
     Indication: GUILLAIN-BARRE SYNDROME
     Dosage: UNK
     Route: 042
  4. PREDNISONE. [Suspect]
     Active Substance: PREDNISONE
     Indication: IMPAIRED GASTRIC EMPTYING
  5. RITUXIMAB. [Suspect]
     Active Substance: RITUXIMAB
     Indication: GUILLAIN-BARRE SYNDROME
     Dosage: UNK
     Route: 065
  6. RITUXIMAB. [Suspect]
     Active Substance: RITUXIMAB
     Indication: IMPAIRED GASTRIC EMPTYING
  7. PREDNISONE. [Suspect]
     Active Substance: PREDNISONE
     Indication: GUILLAIN-BARRE SYNDROME
     Dosage: UNK
     Route: 065
  8. METHYLPREDNISOLONE. [Suspect]
     Active Substance: METHYLPREDNISOLONE
     Indication: IMPAIRED GASTRIC EMPTYING
  9. RITUXIMAB. [Suspect]
     Active Substance: RITUXIMAB
     Indication: MENINGITIS

REACTIONS (4)
  - Chronic inflammatory demyelinating polyradiculoneuropathy [Unknown]
  - Meningitis [Unknown]
  - Impaired gastric emptying [Unknown]
  - Product use in unapproved indication [Unknown]
